FAERS Safety Report 17565862 (Version 3)
Quarter: 2020Q2

REPORT INFORMATION
  Report Type: Spontaneous
  Country: AT (occurrence: AT)
  Receive Date: 20200320
  Receipt Date: 20200624
  Transmission Date: 20200713
  Serious: Yes (Hospitalization, Other)
  Sender: FDA-Public Use
  Company Number: AT-PFIZER INC-2020119799

PATIENT
  Age: 55 Year
  Sex: Female

DRUGS (9)
  1. HYDAL [Suspect]
     Active Substance: HYDROMORPHONE HYDROCHLORIDE
     Dosage: 1.3 MG, UNK
  2. LIDAPRIM [SULFAMETROLE;TRIMETHOPRIM] [Suspect]
     Active Substance: SULFAMETROLE\TRIMETHOPRIM
     Dosage: UNK UNK, 1/WEEK
  3. PANTOLOC [Suspect]
     Active Substance: PANTOPRAZOLE SODIUM
     Dosage: UNK
  4. ENVARSUS XR [Suspect]
     Active Substance: TACROLIMUS
     Dosage: UNK
  5. APREDNISLON [Suspect]
     Active Substance: PREDNISOLONE
     Dosage: 15 MG
  6. METAMIZOL SODICO [METAMIZOLE SODIUM] [Concomitant]
     Dosage: UNK
  7. EUTHYROX [Suspect]
     Active Substance: LEVOTHYROXINE SODIUM
     Dosage: UNK
  8. URSOFALK [Suspect]
     Active Substance: URSODIOL
     Dosage: UNK
  9. HYDAL [Suspect]
     Active Substance: HYDROMORPHONE HYDROCHLORIDE
     Dosage: 4 MG, UNK

REACTIONS (2)
  - Embolism arterial [Recovered/Resolved]
  - Arterial occlusive disease [Recovered/Resolved]
